FAERS Safety Report 9535410 (Version 3)
Quarter: 2013Q4

REPORT INFORMATION
  Report Type: Spontaneous
  Country: JP (occurrence: JP)
  Receive Date: 20130918
  Receipt Date: 20131114
  Transmission Date: 20140711
  Serious: Yes (Hospitalization, Other)
  Sender: FDA-Public Use
  Company Number: JP-TAKEDA-2013TJP000487

PATIENT
  Sex: 0

DRUGS (1)
  1. LANSAP 400 [Suspect]
     Indication: HELICOBACTER INFECTION
     Dosage: UNK
     Route: 048
     Dates: start: 201309, end: 201309

REACTIONS (1)
  - Haemolytic anaemia [Unknown]
